FAERS Safety Report 13608727 (Version 2)
Quarter: 2017Q2

REPORT INFORMATION
  Report Type: Spontaneous
  Country: IT (occurrence: IT)
  Receive Date: 20170602
  Receipt Date: 20170626
  Transmission Date: 20170830
  Serious: Yes (Other)
  Sender: FDA-Public Use
  Company Number: IT-MYLANLABS-2017M1032921

PATIENT

DRUGS (3)
  1. DEXAMETHASONE. [Suspect]
     Active Substance: DEXAMETHASONE
     Indication: PLASMACYTOMA
     Dosage: RECEIVED 1 COURSE OF THE THERAPY
     Route: 065
     Dates: start: 201509
  2. DOXORUBICIN [Suspect]
     Active Substance: DOXORUBICIN
     Indication: PLASMACYTOMA
     Dosage: RECEIVED 1 COURSE OF THE THERAPY
     Route: 065
     Dates: start: 201509
  3. CYCLOPHOSPHAMIDE. [Suspect]
     Active Substance: CYCLOPHOSPHAMIDE
     Indication: PLASMACYTOMA
     Dosage: RECEIVED 1 COURSE OF THE THERAPY
     Route: 065
     Dates: start: 201509

REACTIONS (1)
  - Thrombocytopenia [Unknown]
